FAERS Safety Report 7650253-1 (Version None)
Quarter: 2011Q3

REPORT INFORMATION
  Report Type: 
  Country: None (occurrence: None)
  Receive Date: 20110802
  Receipt Date: 20110719
  Transmission Date: 20111222
  Serious: Yes (Hospitalization)
  Sender: FDA-Public Use
  Company Number: TW-MYLANLABS-2011S1015285

PATIENT
  Age: 78 Year
  Sex: Female

DRUGS (2)
  1. WARFARIN SODIUM [Suspect]
     Indication: DEEP VEIN THROMBOSIS
     Route: 065
  2. WARFARIN SODIUM [Suspect]
     Indication: OVERDOSE
     Route: 065

REACTIONS (3)
  - PERICARDIAL HAEMORRHAGE [None]
  - OVERDOSE [None]
  - VASCULAR PSEUDOANEURYSM [None]
